FAERS Safety Report 19189213 (Version 1)
Quarter: 2021Q2

REPORT INFORMATION
  Report Type: Spontaneous
  Country: US (occurrence: US)
  Receive Date: 20210428
  Receipt Date: 20210428
  Transmission Date: 20210717
  Serious: Yes (Hospitalization, Other)
  Sender: FDA-Public Use
  Company Number: None

PATIENT
  Age: 73 Year
  Sex: Female
  Weight: 93.06 kg

DRUGS (1)
  1. IBRANCE [Suspect]
     Active Substance: PALBOCICLIB
     Indication: BREAST CANCER METASTATIC
     Dates: start: 20150819

REACTIONS (5)
  - Anaemia [None]
  - Dizziness [None]
  - Orthostatic hypotension [None]
  - Fall [None]
  - Neuropathy peripheral [None]

NARRATIVE: CASE EVENT DATE: 20200801
